FAERS Safety Report 5826925-8 (Version None)
Quarter: 2008Q3

REPORT INFORMATION
  Report Type: 
  Country: None (occurrence: None)
  Receive Date: 20080729
  Receipt Date: 20080729
  Transmission Date: 20090109
  Serious: No
  Sender: FDA-Public Use
  Company Number: None

PATIENT
  Age: 37 Year
  Sex: Female
  Weight: 65.7716 kg

DRUGS (1)
  1. MALARONE [Suspect]
     Indication: MALARIA PROPHYLAXIS
     Dosage: 23 TABLETS ONCE A DAY
     Dates: start: 20080701, end: 20080719

REACTIONS (6)
  - DIARRHOEA [None]
  - FATIGUE [None]
  - MYALGIA [None]
  - NAUSEA [None]
  - PYREXIA [None]
  - WEIGHT DECREASED [None]
